FAERS Safety Report 20867554 (Version 3)
Quarter: 2022Q3

REPORT INFORMATION
  Report Type: Spontaneous
  Country: US (occurrence: US)
  Receive Date: 20220524
  Receipt Date: 20220901
  Transmission Date: 20221027
  Serious: No
  Sender: FDA-Public Use
  Company Number: US-PFIZER INC-202200736159

PATIENT
  Age: 58 Year
  Sex: Female

DRUGS (4)
  1. IBRANCE [Suspect]
     Active Substance: PALBOCICLIB
     Dosage: 100 MG, CYCLIC (DAILY ON DAYS 1 THROUGH 21 OF EACH 28 DAY CYCLE)
     Route: 048
     Dates: start: 20220507, end: 20220723
  2. IBRANCE [Suspect]
     Active Substance: PALBOCICLIB
     Dosage: 75 MG, CYCLIC (DAILY ON DAYS 1 THROUGH 21 OF EACH 28 DAY CYCLE)
     Route: 048
     Dates: start: 20220507
  3. LETROZOLE [Concomitant]
     Active Substance: LETROZOLE
     Dosage: UNK
  4. XARELTO [Concomitant]
     Active Substance: RIVAROXABAN
     Dosage: UNK

REACTIONS (4)
  - White blood cell count decreased [Unknown]
  - Pruritus [Unknown]
  - Fatigue [Unknown]
  - Night sweats [Unknown]

NARRATIVE: CASE EVENT DATE: 20220101
